FAERS Safety Report 7865311-6 (Version None)
Quarter: 2011Q4

REPORT INFORMATION
  Report Type: 
  Country: None (occurrence: None)
  Receive Date: 20111028
  Receipt Date: 20111019
  Transmission Date: 20120403
  Serious: Yes (Hospitalization)
  Sender: FDA-Public Use
  Company Number: FR-JNJFOC-20111009378

PATIENT
  Age: 56 Year
  Sex: Female

DRUGS (9)
  1. ESCITALOPRAM OXALATE [Concomitant]
     Route: 065
  2. PREDNISONE [Concomitant]
     Route: 065
  3. PANTOPRAZOLE SODIUM [Concomitant]
     Route: 065
  4. REMICADE [Suspect]
     Indication: RHEUMATOID ARTHRITIS
     Dosage: 10TH INFUSION
     Route: 042
  5. SOLU-MEDROL [Concomitant]
     Indication: PREMEDICATION
     Route: 065
     Dates: start: 20111011
  6. XANAX [Concomitant]
     Route: 065
  7. TUBERSOL [Suspect]
     Indication: PRODUCT USED FOR UNKNOWN INDICATION
     Route: 058
  8. REMICADE [Suspect]
     Route: 042
     Dates: start: 20111011, end: 20111011
  9. TRAMADOL HCL [Concomitant]
     Route: 065

REACTIONS (5)
  - FACE OEDEMA [None]
  - SHOCK [None]
  - DRUG INEFFECTIVE [None]
  - DYSPNOEA [None]
  - INFUSION RELATED REACTION [None]
